FAERS Safety Report 7458358-5 (Version None)
Quarter: 2011Q2

REPORT INFORMATION
  Report Type: 
  Country: None (occurrence: None)
  Receive Date: 20110504
  Receipt Date: 20100303
  Transmission Date: 20111010
  Serious: Yes (Hospitalization)
  Sender: FDA-Public Use
  Company Number: A0848932A

PATIENT
  Age: 48 Year
  Sex: Male

DRUGS (1)
  1. AVANDIA [Suspect]
     Indication: DIABETES MELLITUS
     Dosage: 4MG UNKNOWN
     Route: 048

REACTIONS (3)
  - MYOCARDIAL INFARCTION [None]
  - CHEST PAIN [None]
  - STENT PLACEMENT [None]
